FAERS Safety Report 26219396 (Version 1)
Quarter: 2025Q4

REPORT INFORMATION
  Report Type: Spontaneous
  Country: US (occurrence: US)
  Receive Date: 20251231
  Receipt Date: 20251231
  Transmission Date: 20260118
  Serious: Yes (Hospitalization)
  Sender: AMGEN
  Company Number: US-AMGEN-USASP2025254571

PATIENT
  Age: 62 Year
  Sex: Male

DRUGS (6)
  1. PREDNISONE [Suspect]
     Active Substance: PREDNISONE
     Indication: Glomerulonephritis rapidly progressive
     Dosage: UNK
     Route: 065
  2. PREDNISONE [Suspect]
     Active Substance: PREDNISONE
     Dosage: 60 MILLIGRAM, QD, (PLANNED TAPER TO 40 MG AFTER ONE WEEK)
     Route: 048
  3. AZATHIOPRINE [Concomitant]
     Active Substance: AZATHIOPRINE
  4. XELJANZ [Concomitant]
     Active Substance: TOFACITINIB CITRATE
  5. AZITHROMYCIN [Concomitant]
     Active Substance: AZITHROMYCIN
  6. CEFTRIAXONE [Concomitant]
     Active Substance: CEFTRIAXONE

REACTIONS (6)
  - Pulmonary alveolar haemorrhage [Recovering/Resolving]
  - Blood creatinine abnormal [Unknown]
  - Blood urea abnormal [Unknown]
  - Haemoglobin decreased [Unknown]
  - Glomerular filtration rate abnormal [Unknown]
  - Off label use [Unknown]
